FAERS Safety Report 19295089 (Version 1)
Quarter: 2021Q2

REPORT INFORMATION
  Report Type: Spontaneous
  Country: US (occurrence: US)
  Receive Date: 20210524
  Receipt Date: 20210524
  Transmission Date: 20210717
  Serious: Yes (Other)
  Sender: FDA-Public Use
  Company Number: US-AMGEN-USASP2021077893

PATIENT
  Age: 65 Year
  Sex: Female

DRUGS (2)
  1. ENBREL [Suspect]
     Active Substance: ETANERCEPT
     Indication: PRODUCT USED FOR UNKNOWN INDICATION
     Dosage: UNK
     Route: 065
  2. HUMIRA [Suspect]
     Active Substance: ADALIMUMAB
     Indication: PRODUCT USED FOR UNKNOWN INDICATION
     Dosage: UNK
     Route: 058
     Dates: end: 20210502

REACTIONS (10)
  - Drug ineffective [Unknown]
  - Sinusitis [Unknown]
  - Loss of personal independence in daily activities [Unknown]
  - Uveitis [Unknown]
  - Cellulitis [Unknown]
  - Mobility decreased [Unknown]
  - Vein disorder [Unknown]
  - Drug hypersensitivity [Unknown]
  - Depression [Unknown]
  - Muscle spasms [Unknown]

NARRATIVE: CASE EVENT DATE: 2021
